FAERS Safety Report 6661359-8 (Version None)
Quarter: 2010Q1

REPORT INFORMATION
  Report Type: 
  Country: None (occurrence: None)
  Receive Date: 20100331
  Receipt Date: 20100324
  Transmission Date: 20100710
  Serious: Yes (Other)
  Sender: FDA-Public Use
  Company Number: PHHY2009NL16223

PATIENT
  Sex: Female

DRUGS (1)
  1. DIOVAN [Suspect]
     Dosage: 80 MG, QD
     Route: 048

REACTIONS (7)
  - ANAEMIA [None]
  - EYE HAEMORRHAGE [None]
  - FATIGUE [None]
  - IRON DEFICIENCY [None]
  - MENORRHAGIA [None]
  - SERUM FERRITIN DECREASED [None]
  - VAGINAL HAEMORRHAGE [None]
